FAERS Safety Report 4846504-9 (Version None)
Quarter: 2005Q4

REPORT INFORMATION
  Report Type: 
  Country: None (occurrence: None)
  Receive Date: 20051202
  Receipt Date: 20051126
  Transmission Date: 20060501
  Serious: Yes (Life-Threatening, Hospitalization)
  Sender: FDA-Public Use
  Company Number: 163-20785-05110384

PATIENT
  Age: 68 Year
  Sex: Male

DRUGS (14)
  1. THALOMID [Suspect]
     Indication: MULTIPLE MYELOMA
     Dosage: 100 MG, DAILY, ORAL/COUPLE OF YEARS
     Route: 048
  2. ACETAMINOPHEN [Concomitant]
  3. COMBIVENT [Concomitant]
  4. ASPIRIN [Concomitant]
  5. LIPITOR [Concomitant]
  6. DEXAMETHASONE [Concomitant]
  7. NOREPINEPHRINE BITARTRATE [Concomitant]
  8. NEXIUM [Concomitant]
  9. CLONAZEPAM [Concomitant]
  10. METOPROLOL (METOPROLOL) [Concomitant]
  11. PROMETHAZINE [Concomitant]
  12. PROPOFOL [Concomitant]
  13. MIDAZOLAM HCL [Concomitant]
  14. ZOSYN [Concomitant]

REACTIONS (2)
  - PNEUMONIA [None]
  - RESPIRATORY FAILURE [None]
